FAERS Safety Report 25577707 (Version 1)
Quarter: 2025Q3

REPORT INFORMATION
  Report Type: Spontaneous
  Country: US (occurrence: US)
  Receive Date: 20250718
  Receipt Date: 20250718
  Transmission Date: 20251021
  Serious: No
  Sender: NOVO NORDISK
  Company Number: US-NOVOPROD-1355460

PATIENT
  Age: 67 Year
  Sex: Female

DRUGS (3)
  1. RYBELSUS [Suspect]
     Active Substance: SEMAGLUTIDE
     Indication: Type 2 diabetes mellitus
     Route: 048
     Dates: start: 202308
  2. BUPROPION [Suspect]
     Active Substance: BUPROPION
     Indication: Anticoagulant therapy
  3. BUPROPION [Suspect]
     Active Substance: BUPROPION
     Indication: Depression
     Route: 048

REACTIONS (1)
  - Rosacea [Not Recovered/Not Resolved]

NARRATIVE: CASE EVENT DATE: 20231001
